FAERS Safety Report 16229131 (Version 2)
Quarter: 2019Q3

REPORT INFORMATION
  Report Type: Spontaneous
  Country: GB (occurrence: GB)
  Receive Date: 20190423
  Receipt Date: 20190910
  Transmission Date: 20191004
  Serious: Yes (Hospitalization, Other)
  Sender: FDA-Public Use
  Company Number: GB-PFIZER INC-2019166028

PATIENT
  Age: 71 Year
  Sex: Male

DRUGS (13)
  1. CLOPIDOGREL [Concomitant]
     Active Substance: CLOPIDOGREL BISULFATE
     Indication: CARDIAC DISORDER
     Dosage: 75 MG, UNK
  2. CLOPIXOL (DECANOATE) [Suspect]
     Active Substance: ZUCLOPENTHIXOL DECANOATE
     Dosage: 500 MG, UNK
     Route: 065
  3. CLOPIXOL (DECANOATE) [Suspect]
     Active Substance: ZUCLOPENTHIXOL DECANOATE
     Dosage: 200 MG, UNK (EVERY 2 WEEKS)
     Route: 065
  4. LORAZEPAM. [Concomitant]
     Active Substance: LORAZEPAM
     Dosage: 2 MG, UNK
  5. CLOZAPINE. [Suspect]
     Active Substance: CLOZAPINE
     Dosage: UNK
  6. PARACETAMOL [Concomitant]
     Active Substance: ACETAMINOPHEN
  7. HALOPERIDOL. [Concomitant]
     Active Substance: HALOPERIDOL
     Dosage: 2 DF, DAILY
  8. SERTRALINE HCL [Suspect]
     Active Substance: SERTRALINE HYDROCHLORIDE
     Dosage: UNK
     Route: 065
  9. VALPROATE SEMISODIUM [Suspect]
     Active Substance: DIVALPROEX SODIUM
     Dosage: UNK
  10. CLOPIXOL (DECANOATE) [Suspect]
     Active Substance: ZUCLOPENTHIXOL DECANOATE
     Dosage: 600 MG, EVERY 3 WEEKS
  11. LORAZEPAM. [Suspect]
     Active Substance: LORAZEPAM
     Dosage: 1 UNK, 1MG 4X/DAY (EVERY 6HOURS) ^BUT ALSO BEEN TOLD IT IS 2MG^
     Route: 065
  12. LEVETIRACETAM. [Concomitant]
     Active Substance: LEVETIRACETAM
     Indication: EPILEPSY
     Dosage: UNK
  13. AMLODIPINE [Concomitant]
     Active Substance: AMLODIPINE BESYLATE

REACTIONS (27)
  - Hip fracture [Unknown]
  - Sleep disorder [Unknown]
  - Dyspnoea [Unknown]
  - Seizure [Unknown]
  - Feeling abnormal [Unknown]
  - Mental disorder [Unknown]
  - Multiple fractures [Unknown]
  - Gait disturbance [Unknown]
  - Movement disorder [Unknown]
  - Eye movement disorder [Unknown]
  - Malaise [Unknown]
  - Muscular weakness [Unknown]
  - Lower limb fracture [Unknown]
  - Dysphonia [Unknown]
  - Incontinence [Unknown]
  - Anxiety [Unknown]
  - Hallucination [Unknown]
  - Central nervous system lesion [Unknown]
  - Tremor [Unknown]
  - Dysphagia [Unknown]
  - Syncope [Unknown]
  - Drug intolerance [Unknown]
  - Condition aggravated [Unknown]
  - Obsessive-compulsive disorder [Unknown]
  - Skull fracture [Unknown]
  - Agitation [Unknown]
  - Heart rate irregular [Unknown]
